FAERS Safety Report 19325522 (Version 1)
Quarter: 2021Q2

REPORT INFORMATION
  Report Type: Report from Study
  Country: US (occurrence: US)
  Receive Date: 20210528
  Receipt Date: 20210528
  Transmission Date: 20210717
  Serious: Yes (Other)
  Sender: FDA-Public Use
  Company Number: US-MYLANLABS-2021M1031243

PATIENT
  Age: 6 Month
  Sex: Female

DRUGS (7)
  1. METHOTREXATE. [Suspect]
     Active Substance: METHOTREXATE
     Indication: PROPHYLAXIS
     Dosage: 0.4 MILLIGRAM/KILOGRAM, CYCLE THREE CYCLES OF LOW?DOSE METHOTREXATE; THREE DOSES PER CYCLE
     Route: 065
  2. RITUXIMAB. [Suspect]
     Active Substance: RITUXIMAB
     Indication: PROPHYLAXIS
     Dosage: 375 MILLIGRAM/SQ. METER, QW FOUR DOSES
     Route: 042
  3. METHOTREXATE. [Suspect]
     Active Substance: METHOTREXATE
     Indication: IMMUNE TOLERANCE INDUCTION
  4. RITUXIMAB. [Suspect]
     Active Substance: RITUXIMAB
     Indication: IMMUNE TOLERANCE INDUCTION
  5. RITUXIMAB. [Suspect]
     Active Substance: RITUXIMAB
     Indication: GLYCOGEN STORAGE DISEASE TYPE II
  6. IMMUNOGLOBULINS NOS [Concomitant]
     Active Substance: IMMUNE GLOBULIN NOS
     Indication: IMMUNOMODULATORY THERAPY
     Dosage: 500 MILLIGRAM/KILOGRAM, MONTHLY
     Route: 042
  7. METHOTREXATE. [Suspect]
     Active Substance: METHOTREXATE
     Indication: GLYCOGEN STORAGE DISEASE TYPE II

REACTIONS (4)
  - Rhinovirus infection [Unknown]
  - Pneumonia aspiration [Unknown]
  - Enterovirus infection [Unknown]
  - Aspartate aminotransferase increased [Recovered/Resolved]
